FAERS Safety Report 13178232 (Version 2)
Quarter: 2017Q2

REPORT INFORMATION
  Report Type: Spontaneous
  Country: US (occurrence: US)
  Receive Date: 20170202
  Receipt Date: 20170511
  Transmission Date: 20170830
  Serious: No
  Sender: FDA-Public Use
  Company Number: US-TEVA-732644ACC

PATIENT
  Age: 66 Year
  Sex: Female

DRUGS (21)
  1. VITAMIN D [Concomitant]
     Active Substance: CHOLECALCIFEROL
     Dosage: 1000 UNIT
     Dates: start: 20080220
  2. VITAMIN E [Concomitant]
     Active Substance: .ALPHA.-TOCOPHEROL
     Dosage: 400 UNIT
     Dates: start: 20080220
  3. LIDODERM DIS [Concomitant]
     Dates: start: 19000101
  4. TYLENOL PM [Concomitant]
     Active Substance: ACETAMINOPHEN\DIPHENHYDRAMINE
     Dosage: 25-500 MG
     Dates: start: 20080220
  5. GABAPENTIN. [Concomitant]
     Active Substance: GABAPENTIN
     Dates: start: 20080220
  6. ASPIRIN. [Concomitant]
     Active Substance: ASPIRIN
     Dates: start: 20080220
  7. CYCLOBENZAPRINE. [Concomitant]
     Active Substance: CYCLOBENZAPRINE
     Dates: start: 19000101
  8. GLUCOSAMINE TAB [Concomitant]
     Dates: start: 20080220
  9. PREVIDENT PST [Concomitant]
     Dosage: 5000 BST
     Dates: start: 20101112
  10. TRAMADOL HYDROCHLORIDE. [Concomitant]
     Active Substance: TRAMADOL HYDROCHLORIDE
     Dates: start: 20080902
  11. DIAZEPAM. [Concomitant]
     Active Substance: DIAZEPAM
     Dates: start: 19000101
  12. COPAXONE [Suspect]
     Active Substance: GLATIRAMER ACETATE
     Indication: MULTIPLE SCLEROSIS
     Dosage: PRE FILLED SYRINGE
     Route: 058
     Dates: start: 20080311
  13. FEXOFENADINE [Concomitant]
     Active Substance: FEXOFENADINE\FEXOFENADINE HYDROCHLORIDE
     Dates: start: 20080220
  14. FORADIL [Concomitant]
     Active Substance: FORMOTEROL FUMARATE
     Dosage: AEROLIZE
     Dates: start: 20150527
  15. TRICOR [Concomitant]
     Active Substance: FENOFIBRATE
     Dates: start: 20101105
  16. COMBIPATCH DIS .05/.25 [Concomitant]
     Dates: start: 19000101
  17. FISH OIL [Concomitant]
     Active Substance: FISH OIL
     Dates: start: 20080220
  18. VITAMIN C [Concomitant]
     Active Substance: ASCORBIC ACID
  19. RA CALCIUM [Concomitant]
     Dosage: HIGH POT
     Dates: start: 20080220
  20. COLACE [Concomitant]
     Active Substance: DOCUSATE SODIUM
     Dates: start: 20080220
  21. ACIPHEX [Concomitant]
     Active Substance: RABEPRAZOLE SODIUM
     Dates: start: 20080220

REACTIONS (2)
  - Urinary tract infection [Unknown]
  - Vertigo [Unknown]

NARRATIVE: CASE EVENT DATE: 20161109
